FAERS Safety Report 25412952 (Version 1)
Quarter: 2025Q2

REPORT INFORMATION
  Report Type: Spontaneous
  Country: RU (occurrence: RU)
  Receive Date: 20250609
  Receipt Date: 20250609
  Transmission Date: 20250716
  Serious: Yes (Other)
  Sender: ROCHE
  Company Number: RU-ROCHE-10000306812

PATIENT

DRUGS (2)
  1. ACTEMRA [Suspect]
     Active Substance: TOCILIZUMAB
     Indication: Juvenile idiopathic arthritis
     Route: 042
     Dates: start: 2012
  2. ACTEMRA [Suspect]
     Active Substance: TOCILIZUMAB
     Dosage: IT WAS THE SECOND INFUSION?INJECTIONS FROM 2 VIALS OF 80 MG AND 1 VIAL OF 200 MG
     Route: 042
     Dates: start: 20170925

REACTIONS (7)
  - Vomiting [Recovered/Resolved]
  - Infusion related reaction [Recovered/Resolved]
  - Product complaint [Unknown]
  - Hyperaemia [Recovered/Resolved]
  - Blood pressure decreased [Recovered/Resolved]
  - Respiratory disorder [Recovered/Resolved]
  - Tachycardia [Recovered/Resolved]

NARRATIVE: CASE EVENT DATE: 20170925
